FAERS Safety Report 8456043-4 (Version None)
Quarter: 2012Q2

REPORT INFORMATION
  Report Type: 
  Country: None (occurrence: None)
  Receive Date: 20120621
  Receipt Date: 20120612
  Transmission Date: 20120825
  Serious: Yes (Hospitalization)
  Sender: FDA-Public Use
  Company Number: PHHY2012FR044873

PATIENT
  Sex: Female

DRUGS (2)
  1. ILARIS [Suspect]
     Indication: MEVALONATE KINASE DEFICIENCY
  2. ILARIS [Suspect]
     Indication: HYPER IGD SYNDROME
     Dosage: 150 MG, UNK

REACTIONS (6)
  - CONDITION AGGRAVATED [None]
  - RASH [None]
  - NODAL ARRHYTHMIA [None]
  - HYPER IGD SYNDROME [None]
  - ARTHRALGIA [None]
  - PYREXIA [None]
